FAERS Safety Report 8261025-1 (Version None)
Quarter: 2012Q2

REPORT INFORMATION
  Report Type: 
  Country: None (occurrence: None)
  Receive Date: 20120405
  Receipt Date: 20120403
  Transmission Date: 20120825
  Serious: No
  Sender: FDA-Public Use
  Company Number: US-PFIZER INC-2012085317

PATIENT
  Sex: Female

DRUGS (2)
  1. CHANTIX [Suspect]
     Dosage: 0.5 MG, UNK
     Dates: start: 20120301, end: 20120101
  2. CHANTIX [Suspect]
     Dosage: 1 MG, UNK
     Dates: start: 20120101

REACTIONS (1)
  - NAUSEA [None]
